FAERS Safety Report 11793910 (Version 1)
Quarter: 2015Q4

REPORT INFORMATION
  Report Type: Spontaneous
  Country: US (occurrence: None)
  Receive Date: 20151201
  Receipt Date: 20151201
  Transmission Date: 20160305
  Serious: Yes (Disabling)
  Sender: FDA-Public Use
  Company Number: None

PATIENT
  Age: 29 Year
  Sex: Female
  Weight: 53.52 kg

DRUGS (6)
  1. HALOPERIDOL. [Suspect]
     Active Substance: HALOPERIDOL
  2. CLARITIN [Concomitant]
     Active Substance: LORATADINE
  3. ENSURE [Concomitant]
     Active Substance: AMINO ACIDS\DEXTROSE\ELECTROLYTES NOS\SOYBEAN OIL\VITAMINS
  4. GINSENG [Concomitant]
     Active Substance: ASIAN GINSENG
  5. KLONOPIN [Concomitant]
     Active Substance: CLONAZEPAM
  6. GUARANA [Concomitant]

REACTIONS (7)
  - Tremor [None]
  - Tendon disorder [None]
  - Anxiety [None]
  - Oesophageal disorder [None]
  - Muscle disorder [None]
  - Seizure [None]
  - Muscle tightness [None]
